FAERS Safety Report 14044753 (Version 1)
Quarter: 2017Q4

REPORT INFORMATION
  Report Type: Report from Study
  Country: US (occurrence: US)
  Receive Date: 20171005
  Receipt Date: 20171005
  Transmission Date: 20180321
  Serious: No
  Sender: FDA-Public Use
  Company Number: PHEH2017US032093

PATIENT
  Sex: Female

DRUGS (1)
  1. COSENTYX [Suspect]
     Active Substance: SECUKINUMAB
     Indication: ANKYLOSING SPONDYLITIS
     Dosage: 50 MG, QMO (EVERY 4 WEEKS)
     Route: 058
     Dates: start: 20170909

REACTIONS (2)
  - Pruritus [Unknown]
  - Inappropriate schedule of drug administration [Unknown]
